FAERS Safety Report 6441027-8 (Version None)
Quarter: 2009Q4

REPORT INFORMATION
  Report Type: 
  Country: None (occurrence: None)
  Receive Date: 20091116
  Receipt Date: 20091102
  Transmission Date: 20100525
  Serious: Yes (Other)
  Sender: FDA-Public Use
  Company Number: US-ROCHE-666416

PATIENT
  Sex: Male

DRUGS (1)
  1. PEGASYS [Suspect]
     Indication: HEPATITIS C
     Route: 065
     Dates: start: 19980101

REACTIONS (5)
  - ANXIETY [None]
  - BLEEDING VARICOSE VEIN [None]
  - DIABETES MELLITUS [None]
  - DRUG EFFECT DECREASED [None]
  - HYPERHIDROSIS [None]
